FAERS Safety Report 7612026-5 (Version None)
Quarter: 2011Q3

REPORT INFORMATION
  Report Type: 
  Country: None (occurrence: None)
  Receive Date: 20110715
  Receipt Date: 20110705
  Transmission Date: 20111222
  Serious: Yes (Hospitalization)
  Sender: FDA-Public Use
  Company Number: US-AMGEN-USASP2011034055

PATIENT
  Age: 40 Year
  Sex: Female

DRUGS (2)
  1. ENBREL [Suspect]
     Indication: RHEUMATOID ARTHRITIS
     Dosage: 50 MG, QWK
     Dates: start: 20110101
  2. METHOTREXATE [Concomitant]
     Dosage: 1 MG, QWK
     Dates: start: 20070301

REACTIONS (7)
  - ARTHRITIS [None]
  - PERIPHERAL COLDNESS [None]
  - INJECTION SITE ERYTHEMA [None]
  - GAIT DISTURBANCE [None]
  - INJECTION SITE SWELLING [None]
  - HYSTERECTOMY [None]
  - SKIN DISCOLOURATION [None]
